FAERS Safety Report 7922020-2 (Version None)
Quarter: 2011Q4

REPORT INFORMATION
  Report Type: 
  Country: None (occurrence: None)
  Receive Date: 20111117
  Receipt Date: 20111108
  Transmission Date: 20120403
  Serious: Yes (Hospitalization, Other)
  Sender: FDA-Public Use
  Company Number: US-ABBOTT-11P-163-0872150-00

PATIENT
  Age: 58 Year
  Sex: Male

DRUGS (6)
  1. LAMIVUDINE [Suspect]
     Indication: HIV INFECTION
  2. AMPRENAVIR [Suspect]
     Indication: HIV INFECTION
  3. ENFUVIRTIDE [Suspect]
     Indication: HIV INFECTION
  4. LOPINAVIR/RITONAVIR [Suspect]
     Indication: HIV INFECTION
  5. EFAVIRENZ [Suspect]
     Indication: HIV INFECTION
  6. ABACAVIR [Suspect]
     Indication: HIV INFECTION

REACTIONS (3)
  - IMMUNE RECONSTITUTION SYNDROME [None]
  - NEUROMYOPATHY [None]
  - GUILLAIN-BARRE SYNDROME [None]
